FAERS Safety Report 6129464-2 (Version None)
Quarter: 2009Q1

REPORT INFORMATION
  Report Type: 
  Country: None (occurrence: None)
  Receive Date: 20090323
  Receipt Date: 20090323
  Transmission Date: 20090719
  Serious: Yes (Other)
  Sender: FDA-Public Use
  Company Number: None

PATIENT
  Age: 32 Year
  Sex: Female
  Weight: 90.7194 kg

DRUGS (1)
  1. MIRENA [Suspect]
     Indication: CONTRACEPTION

REACTIONS (8)
  - ABDOMINAL PAIN [None]
  - AMENORRHOEA [None]
  - BACK PAIN [None]
  - BLOOD DISORDER [None]
  - DEPRESSION [None]
  - MIGRAINE [None]
  - MOOD SWINGS [None]
  - MUSCLE SPASMS [None]
